FAERS Safety Report 7992226-5 (Version None)
Quarter: 2011Q4

REPORT INFORMATION
  Report Type: 
  Country: None (occurrence: None)
  Receive Date: 20111219
  Receipt Date: 20111205
  Transmission Date: 20120403
  Serious: Yes (Other)
  Sender: FDA-Public Use
  Company Number: US-ELI_LILLY_AND_COMPANY-US201108008551

PATIENT
  Sex: Female
  Weight: 49 kg

DRUGS (6)
  1. AMBIEN [Concomitant]
  2. FORTEO [Suspect]
     Dosage: 20 UG, QD
     Route: 058
     Dates: start: 20110701, end: 20111020
  3. FORTEO [Suspect]
     Dosage: 20 UG, QD
     Route: 058
     Dates: end: 20110701
  4. LYRICA [Concomitant]
  5. CELEX [Concomitant]
  6. FORTEO [Suspect]
     Indication: OSTEOPOROSIS
     Dosage: 20 UG, QD
     Route: 058
     Dates: start: 20110701

REACTIONS (7)
  - DECREASED APPETITE [None]
  - NAUSEA [None]
  - FEEDING DISORDER [None]
  - GASTROENTERITIS [None]
  - WEIGHT DECREASED [None]
  - MALAISE [None]
  - FATIGUE [None]
